FAERS Safety Report 6255382-5 (Version None)
Quarter: 2009Q3

REPORT INFORMATION
  Report Type: 
  Country: None (occurrence: None)
  Receive Date: 20090702
  Receipt Date: 20090619
  Transmission Date: 20100115
  Serious: Yes (Other)
  Sender: FDA-Public Use
  Company Number: PHHY2009AU24307

PATIENT
  Sex: Male

DRUGS (1)
  1. TASIGNA [Suspect]
     Indication: CHRONIC MYELOID LEUKAEMIA
     Dosage: 2 DF, BID

REACTIONS (4)
  - IMPAIRED HEALING [None]
  - MALIGNANT MELANOMA [None]
  - PERIPHERAL COLDNESS [None]
  - SKIN NEOPLASM EXCISION [None]
